FAERS Safety Report 4322403-6 (Version None)
Quarter: 2004Q1

REPORT INFORMATION
  Report Type: 
  Country: None (occurrence: None)
  Receive Date: 20040324
  Receipt Date: 20040316
  Transmission Date: 20041129
  Serious: Yes (Death, Other)
  Sender: FDA-Public Use
  Company Number: PHBS2004US03792

PATIENT
  Age: 42 Year
  Sex: Female

DRUGS (5)
  1. CYCLOSPORINE [Suspect]
     Indication: BONE MARROW TRANSPLANT
     Route: 065
     Dates: start: 19980101
  2. METHOTREXATE [Suspect]
     Dates: start: 19980101
  3. CYCLOPHOSPHAMIDE [Concomitant]
     Dosage: 120 MG/KG/D
     Dates: start: 19980101
  4. IRRADIATION [Concomitant]
     Dosage: 13.2 GY
     Dates: start: 19980101
  5. GANCICLOVIR [Concomitant]
     Route: 042
     Dates: start: 19980101

REACTIONS (8)
  - CARDIAC ARREST [None]
  - CHEST PAIN [None]
  - CORONARY ARTERY DISEASE [None]
  - CORONARY ARTERY STENOSIS [None]
  - CRYPTOGENIC ORGANIZING PNEUMONIA [None]
  - ELECTROCARDIOGRAM ST SEGMENT ABNORMAL [None]
  - FASCIITIS [None]
  - GRAFT VERSUS HOST DISEASE [None]
